FAERS Safety Report 7364876-0 (Version None)
Quarter: 2011Q1

REPORT INFORMATION
  Report Type: 
  Country: None (occurrence: None)
  Receive Date: 20110321
  Receipt Date: 20110311
  Transmission Date: 20110831
  Serious: Yes (Hospitalization)
  Sender: FDA-Public Use
  Company Number: US-ASTRAZENECA-2011SE13722

PATIENT
  Age: 69 Year
  Sex: Male

DRUGS (5)
  1. METFORMIN [Concomitant]
  2. LISINOPRIL [Concomitant]
  3. FINASTERIDE [Concomitant]
  4. TAMSULOSIN HCL [Concomitant]
  5. CASODEX [Suspect]
     Indication: PROSTATIC SPECIFIC ANTIGEN
     Route: 048
     Dates: start: 20100501

REACTIONS (4)
  - DYSPNOEA [None]
  - OFF LABEL USE [None]
  - VENTRICULAR EXTRASYSTOLES [None]
  - BLOOD POTASSIUM DECREASED [None]
